FAERS Safety Report 13949111 (Version 1)
Quarter: 2017Q3

REPORT INFORMATION
  Report Type: Spontaneous
  Country: US (occurrence: US)
  Receive Date: 20170908
  Receipt Date: 20170908
  Transmission Date: 20171128
  Serious: Yes (Other)
  Sender: FDA-Public Use
  Company Number: US-ASTRAZENECA-2016SF28844

PATIENT
  Age: 20046 Day
  Sex: Female

DRUGS (1)
  1. ZOMIG [Suspect]
     Active Substance: ZOLMITRIPTAN
     Dosage: 1.0DF AS REQUIRED
     Route: 048

REACTIONS (6)
  - Stress [Unknown]
  - Head discomfort [Unknown]
  - Migraine [Unknown]
  - Nasal congestion [Unknown]
  - Seizure [Unknown]
  - Anxiety [Unknown]

NARRATIVE: CASE EVENT DATE: 20160929
